FAERS Safety Report 15023872 (Version 1)
Quarter: 2018Q2

REPORT INFORMATION
  Report Type: Spontaneous
  Country: PT (occurrence: PT)
  Receive Date: 20180618
  Receipt Date: 20180618
  Transmission Date: 20180711
  Serious: Yes (Hospitalization)
  Sender: FDA-Public Use
  Company Number: PT-BAYER-2018-105556

PATIENT
  Age: 76 Year
  Sex: Male

DRUGS (1)
  1. ACETYLSALICYLIC ACID({=100 MG) [Suspect]
     Active Substance: ASPIRIN

REACTIONS (4)
  - Arterial haemorrhage [None]
  - Arterial rupture [None]
  - Labelled drug-disease interaction medication error [None]
  - Contraindicated product administered [None]
